FAERS Safety Report 17241127 (Version 1)
Quarter: 2020Q1

REPORT INFORMATION
  Report Type: Spontaneous
  Country: US (occurrence: US)
  Receive Date: 20200106
  Receipt Date: 20200106
  Transmission Date: 20200409
  Serious: Yes (Disabling)
  Sender: FDA-Public Use
  Company Number: None

PATIENT
  Age: 48 Year
  Sex: Female
  Weight: 87.75 kg

DRUGS (7)
  1. LUPRON DEPOT [Suspect]
     Active Substance: LEUPROLIDE ACETATE
     Indication: ENDOMETRIOSIS
     Dosage: ?          OTHER FREQUENCY:MONTHLY;?
     Route: 030
  2. MULTIVITAMINS [Concomitant]
     Active Substance: VITAMINS
  3. OMEGA3 [Concomitant]
  4. PREBIOTICS [Concomitant]
  5. CALCIUM [Concomitant]
     Active Substance: CALCIUM
  6. LUPRON DEPOT [Suspect]
     Active Substance: LEUPROLIDE ACETATE
     Indication: UTERINE LEIOMYOMA
     Dosage: ?          OTHER FREQUENCY:MONTHLY;?
     Route: 030
  7. VITAMIN D [Concomitant]
     Active Substance: VITAMIN D NOS

REACTIONS (8)
  - Bone loss [None]
  - Product prescribing error [None]
  - Loss of personal independence in daily activities [None]
  - Pain [None]
  - Degenerative bone disease [None]
  - Arthritis [None]
  - Spondylitis [None]
  - Bone pain [None]

NARRATIVE: CASE EVENT DATE: 20100303
